FAERS Safety Report 24164308 (Version 2)
Quarter: 2024Q3

REPORT INFORMATION
  Report Type: Report from Study
  Country: CA (occurrence: CA)
  Receive Date: 20240801
  Receipt Date: 20240905
  Transmission Date: 20241016
  Serious: Yes (Other)
  Sender: BAUSCH AND LOMB
  Company Number: CA-BAUSCH-BL-2024-011583

PATIENT
  Age: 36 Year
  Sex: Female

DRUGS (3)
  1. SILIQ [Suspect]
     Active Substance: BRODALUMAB
     Indication: Psoriasis
     Dosage: 210MG / 1.5ML, WEEK (0-2)
     Route: 058
     Dates: start: 20201209, end: 202012
  2. SILIQ [Suspect]
     Active Substance: BRODALUMAB
     Dosage: 210MG / 1.5ML, Q 2 WEEKS
     Route: 058
     Dates: start: 202101
  3. COSENTYX [Concomitant]
     Active Substance: SECUKINUMAB
     Indication: Product used for unknown indication
     Dosage: 2 NEEDLES EVERY 2 WEEKS

REACTIONS (1)
  - Surgery [Unknown]

NARRATIVE: CASE EVENT DATE: 20240726
